FAERS Safety Report 15995002 (Version 1)
Quarter: 2019Q1

REPORT INFORMATION
  Report Type: Spontaneous
  Country: JP (occurrence: JP)
  Receive Date: 20190222
  Receipt Date: 20190222
  Transmission Date: 20190418
  Serious: Yes (Other)
  Sender: FDA-Public Use
  Company Number: JP-PURDUE PHARMA-GBR-2019-0064297

PATIENT
  Age: 62 Year
  Sex: Male

DRUGS (3)
  1. TRAMADOL. [Concomitant]
     Active Substance: TRAMADOL
     Indication: PARANEOPLASTIC NEUROLOGICAL SYNDROME
     Dosage: 75 MG, DAILY
     Route: 048
  2. LYRICA [Concomitant]
     Active Substance: PREGABALIN
     Indication: PARANEOPLASTIC NEUROLOGICAL SYNDROME
     Dosage: 300 MG, DAILY
     Route: 048
  3. NORSPAN [Suspect]
     Active Substance: BUPRENORPHINE
     Indication: PARANEOPLASTIC NEUROLOGICAL SYNDROME
     Dosage: 10 MCG, Q1H
     Route: 062

REACTIONS (4)
  - Ileus paralytic [Unknown]
  - Eating disorder [Unknown]
  - Gastrointestinal obstruction [Unknown]
  - Off label use [Unknown]
